FAERS Safety Report 23361648 (Version 1)
Quarter: 2024Q1

REPORT INFORMATION
  Report Type: Spontaneous
  Country: IT (occurrence: IT)
  Receive Date: 20240103
  Receipt Date: 20240103
  Transmission Date: 20240410
  Serious: Yes (Other)
  Sender: FDA-Public Use
  Company Number: IT-ALIMERA SCIENCES INC.-IT-A16013-23-000182

PATIENT
  Sex: Male

DRUGS (1)
  1. ILUVIEN [Suspect]
     Active Substance: FLUOCINOLONE ACETONIDE
     Indication: Product used for unknown indication
     Dosage: 0.25 MICROGRAM, QD - UNKNOWN EYE
     Route: 031
     Dates: start: 20230707

REACTIONS (4)
  - Conjunctival haemorrhage [Unknown]
  - Eye pain [Unknown]
  - Device difficult to use [Unknown]
  - Product administration error [Unknown]

NARRATIVE: CASE EVENT DATE: 20230707
